FAERS Safety Report 24454608 (Version 2)
Quarter: 2024Q4

REPORT INFORMATION
  Report Type: Report from Study
  Country: FR (occurrence: FR)
  Receive Date: 20241017
  Receipt Date: 20241018
  Transmission Date: 20250115
  Serious: No
  Sender: ROCHE
  Company Number: FR-ROCHE-3461014

PATIENT
  Age: 39 Year
  Sex: Female

DRUGS (5)
  1. RITUXIMAB [Suspect]
     Active Substance: RITUXIMAB
     Indication: Sjogren^s syndrome
     Route: 042
  2. RITUXIMAB [Suspect]
     Active Substance: RITUXIMAB
     Indication: Lymphoproliferative disorder
  3. OBINUTUZUMAB [Concomitant]
     Active Substance: OBINUTUZUMAB
     Indication: Extranodal marginal zone B-cell lymphoma (MALT type)
     Route: 042
  4. BENDAMUSTINE [Concomitant]
     Active Substance: BENDAMUSTINE
  5. OFATUMUMAB [Concomitant]
     Active Substance: OFATUMUMAB

REACTIONS (1)
  - Drug specific antibody present [Unknown]
